FAERS Safety Report 15548396 (Version 1)
Quarter: 2018Q4

REPORT INFORMATION
  Report Type: Spontaneous
  Country: IT (occurrence: IT)
  Receive Date: 20181024
  Receipt Date: 20181024
  Transmission Date: 20190205
  Serious: Yes (Other)
  Sender: FDA-Public Use
  Company Number: IT-BEH-2018095952

PATIENT
  Age: 81 Year
  Sex: Male
  Weight: 68 kg

DRUGS (1)
  1. PRIVIGEN [Suspect]
     Active Substance: HUMAN IMMUNOGLOBULIN G
     Indication: IMMUNODEFICIENCY
     Dosage: 30 G, TOT
     Route: 042
     Dates: start: 20181012, end: 20181012

REACTIONS (2)
  - Bronchospasm [Unknown]
  - Chills [Unknown]

NARRATIVE: CASE EVENT DATE: 20181012
